FAERS Safety Report 15019599 (Version 1)
Quarter: 2018Q2

REPORT INFORMATION
  Report Type: Spontaneous
  Country: US (occurrence: US)
  Receive Date: 20180618
  Receipt Date: 20180618
  Transmission Date: 20180711
  Serious: Yes (Hospitalization, Other)
  Sender: FDA-Public Use
  Company Number: US-LUPIN PHARMACEUTICALS INC.-2018-03001

PATIENT
  Age: 71 Year
  Sex: Female

DRUGS (1)
  1. LINEZOLID. [Suspect]
     Active Substance: LINEZOLID
     Indication: STAPHYLOCOCCAL BACTERAEMIA
     Dosage: UNK, STARTED 16 DAYS AGO
     Route: 065

REACTIONS (2)
  - Thrombocytopenia [Recovered/Resolved]
  - Lactic acidosis [Recovered/Resolved]
